FAERS Safety Report 7751907-9 (Version None)
Quarter: 2011Q3

REPORT INFORMATION
  Report Type: 
  Country: None (occurrence: None)
  Receive Date: 20110914
  Receipt Date: 20110914
  Transmission Date: 20111222
  Serious: Yes (Hospitalization)
  Sender: FDA-Public Use
  Company Number: None

PATIENT
  Sex: Female
  Weight: 66.6 kg

DRUGS (4)
  1. FUROSEMIDE [Concomitant]
  2. DEXAMETHASONE [Suspect]
     Dosage: 160 MG
     Dates: end: 20110825
  3. MELPHALAN HYDROCHLORIDE [Suspect]
     Dosage: 64 MG
     Dates: end: 20110825
  4. METOLAZONE [Concomitant]

REACTIONS (9)
  - WEIGHT DECREASED [None]
  - DIARRHOEA [None]
  - NEUTROPENIA [None]
  - HYPOKALAEMIA [None]
  - FATIGUE [None]
  - PLATELET COUNT ABNORMAL [None]
  - ASTHENIA [None]
  - CHILLS [None]
  - ORTHOSTATIC HYPOTENSION [None]
